FAERS Safety Report 14147467 (Version 1)
Quarter: 2017Q4

REPORT INFORMATION
  Report Type: Spontaneous
  Country: US (occurrence: US)
  Receive Date: 20171031
  Receipt Date: 20171031
  Transmission Date: 20180321
  Serious: Yes (Hospitalization, Other)
  Sender: FDA-Public Use
  Company Number: US-BAYER-2017-202792

PATIENT
  Sex: Female
  Weight: 61 kg

DRUGS (1)
  1. ALEVE COLD + SINUS [Suspect]
     Active Substance: NAPROXEN SODIUM\PSEUDOEPHEDRINE HYDROCHLORIDE
     Indication: SINUS CONGESTION
     Dosage: 1 DF, QD
     Route: 048

REACTIONS (4)
  - Acute kidney injury [Recovered/Resolved]
  - Diverticulitis [Not Recovered/Not Resolved]
  - Vomiting [Recovered/Resolved]
  - Gastrointestinal ulcer [Recovered/Resolved]
